FAERS Safety Report 9088273 (Version 1)
Quarter: 2013Q1

REPORT INFORMATION
  Report Type: Spontaneous
  Country: GB (occurrence: GB)
  Receive Date: 20130201
  Receipt Date: 20130201
  Transmission Date: 20140127
  Serious: Yes (Hospitalization)
  Sender: FDA-Public Use
  Company Number: GB-PFIZER INC-2013039630

PATIENT
  Age: 88 Year
  Sex: Female

DRUGS (8)
  1. CELEBREX [Suspect]
     Indication: POSTOPERATIVE ANALGESIA
     Dosage: STOPPED ON ADMISSION
     Route: 048
     Dates: start: 20130114, end: 20130115
  2. ASPIRIN [Concomitant]
     Dosage: LONG TERM TREATMENT, STOPPED ON ADMISSION
  3. LOSARTAN [Concomitant]
  4. FENTANYL [Concomitant]
  5. LAXIDO [Concomitant]
  6. SENNOSIDES [Concomitant]
  7. MACROGOL [Concomitant]
  8. POTASSIUM CHLORIDE [Concomitant]

REACTIONS (2)
  - Gastritis [Recovering/Resolving]
  - Helicobacter infection [Unknown]
